FAERS Safety Report 14554619 (Version 1)
Quarter: 2018Q1

REPORT INFORMATION
  Report Type: Spontaneous
  Country: US (occurrence: US)
  Receive Date: 20180220
  Receipt Date: 20180220
  Transmission Date: 20180509
  Serious: Yes (Death)
  Sender: FDA-Public Use
  Company Number: None

PATIENT
  Age: 22 Year
  Sex: Male

DRUGS (1)
  1. MITRAGYNA SPECIOSA KORTHALS (BOTANIC NAME) (KRATOM) [Suspect]
     Active Substance: MITRAGYNINE\HERBALS

REACTIONS (7)
  - Areflexia [None]
  - Aspartate aminotransferase increased [None]
  - Blood creatine phosphokinase increased [None]
  - Electroencephalogram abnormal [None]
  - Hypothermia [None]
  - Rhabdomyolysis [None]
  - Alanine aminotransferase increased [None]
